FAERS Safety Report 6843354-9 (Version None)
Quarter: 2010Q2

REPORT INFORMATION
  Report Type: 
  Country: None (occurrence: None)
  Receive Date: 20100629
  Receipt Date: 20100512
  Transmission Date: 20101027
  Serious: No
  Sender: FDA-Public Use
  Company Number: US-WYE-H15261210

PATIENT
  Age: 40 Year
  Sex: Female
  Weight: 50.85 kg

DRUGS (2)
  1. PRISTIQ [Suspect]
     Dosage: 50 MG 1X PER 1 DAY, ORAL ; 50 MG 1X PER 1 DAY, ORAL
     Route: 048
     Dates: start: 20090101
  2. PRISTIQ [Suspect]
     Dosage: 50 MG 1X PER 1 DAY, ORAL ; 50 MG 1X PER 1 DAY, ORAL
     Route: 048
     Dates: start: 20100501

REACTIONS (2)
  - DRUG INEFFECTIVE [None]
  - MEDICATION RESIDUE [None]
